FAERS Safety Report 18811113 (Version 2)
Quarter: 2021Q1

REPORT INFORMATION
  Report Type: Spontaneous
  Country: IT (occurrence: IT)
  Receive Date: 20210129
  Receipt Date: 20210212
  Transmission Date: 20210419
  Serious: Yes (Death, Other)
  Sender: FDA-Public Use
  Company Number: IT-BAYER-2021-033171

PATIENT
  Age: 69 Year
  Sex: Male

DRUGS (6)
  1. CABOZANTINIB [Concomitant]
     Active Substance: CABOZANTINIB
  2. EVEROLIMUS. [Concomitant]
     Active Substance: EVEROLIMUS
     Dosage: 10 MG PER DAY
  3. EVEROLIMUS;LENVATINIB [Concomitant]
     Dosage: 8/5 MG DAILY
     Dates: start: 201806, end: 201912
  4. EVEROLIMUS;LENVATINIB [Concomitant]
     Dosage: UNK
     Dates: end: 201706
  5. EVEROLIMUS;LENVATINIB [Concomitant]
     Dosage: 4/5 MG DAILY
     Dates: start: 201710
  6. SORAFENIB (RAF KINASE INHIBITOR) [Suspect]
     Active Substance: SORAFENIB
     Indication: RENAL CELL CARCINOMA
     Dosage: UNK
     Dates: start: 201701

REACTIONS (2)
  - Skin toxicity [Recovered/Resolved]
  - Renal cell carcinoma [Fatal]
